FAERS Safety Report 15915583 (Version 1)
Quarter: 2019Q1

REPORT INFORMATION
  Report Type: Spontaneous
  Country: US (occurrence: US)
  Receive Date: 20190111
  Receipt Date: 20190111
  Transmission Date: 20190417
  Serious: Yes (Disabling)
  Sender: FDA-Public Use
  Company Number: None

PATIENT
  Age: 69 Year
  Sex: Male
  Weight: 77.11 kg

DRUGS (14)
  1. METOPROLOL SUCCINATE. [Concomitant]
     Active Substance: METOPROLOL SUCCINATE
  2. OLIVE LEAF EXTRACT [Concomitant]
  3. VITAMIN C [Concomitant]
     Active Substance: ASCORBIC ACID
  4. COQ10 [Concomitant]
     Active Substance: UBIDECARENONE
  5. DIAZEPAM. [Concomitant]
     Active Substance: DIAZEPAM
  6. LOSARTAN 25MG [Suspect]
     Active Substance: LOSARTAN
     Indication: HYPERTENSION
     Dosage: ?          QUANTITY:25 MG MILLIGRAM(S);?
     Route: 048
     Dates: start: 20181214, end: 20181230
  7. ALPHA LOPERIC ACID [Concomitant]
  8. PROTEIN POWDER [Concomitant]
  9. VITAMIN B COMPLEX [Concomitant]
     Active Substance: CYANOCOBALAMIN\DEXPANTHENOL\NIACINAMIDE\PYRIDOXINE HYDROCHLORIDE\RIBOFLAVIN 5^-PHOSPHATE SODIUM\THIAMINE HYDROCHLORIDE\VITAMIN B COMPLEX
  10. GARLIC. [Concomitant]
     Active Substance: GARLIC
  11. MAGNESIUM [Concomitant]
     Active Substance: MAGNESIUM
  12. BEET. [Concomitant]
     Active Substance: BEET
  13. LOSARTAN 25MG [Suspect]
     Active Substance: LOSARTAN
     Dosage: ?          QUANTITY:50 MG MILLIGRAM(S);?
     Route: 048
  14. MULTI-VITAMIN [Concomitant]
     Active Substance: .ALPHA.-TOCOPHEROL ACETATE, DL-\ASCORBIC ACID\CYANOCOBALAMIN\FLUORIDE ION\FOLIC ACID\NIACIN\PYRIDOXINE\RIBOFLAVIN\THIAMINE\VITAMIN A\VITAMIN D

REACTIONS (6)
  - Cognitive disorder [None]
  - Intentional product use issue [None]
  - Pain in jaw [None]
  - Anxiety [None]
  - Underdose [None]
  - Dizziness [None]

NARRATIVE: CASE EVENT DATE: 20181215
